FAERS Safety Report 14177378 (Version 1)
Quarter: 2017Q4

REPORT INFORMATION
  Report Type: Spontaneous
  Country: ES (occurrence: ES)
  Receive Date: 20171110
  Receipt Date: 20171110
  Transmission Date: 20180321
  Serious: Yes (Other)
  Sender: FDA-Public Use
  Company Number: ES-GLAXOSMITHKLINE-ES2017168276

PATIENT
  Age: 41 Year
  Sex: Male
  Weight: 136 kg

DRUGS (1)
  1. LAMICTAL [Suspect]
     Active Substance: LAMOTRIGINE
     Indication: DEPRESSION
     Dosage: 50 MG 2 TIMES A DAY
     Route: 048
     Dates: start: 20150203, end: 20171006

REACTIONS (3)
  - Polyuria [Recovering/Resolving]
  - Nocturia [Recovering/Resolving]
  - Post micturition dribble [Recovering/Resolving]

NARRATIVE: CASE EVENT DATE: 20151014
